FAERS Safety Report 5328732-1 (Version None)
Quarter: 2007Q2

REPORT INFORMATION
  Report Type: 
  Country: None (occurrence: None)
  Receive Date: 20070518
  Receipt Date: 20070511
  Transmission Date: 20071010
  Serious: Yes (Death)
  Sender: FDA-Public Use
  Company Number: US-JNJFOC-20070503181

PATIENT
  Sex: Male
  Weight: 124.74 kg

DRUGS (3)
  1. ULTRAM [Suspect]
     Indication: ARTHRALGIA
     Route: 048
  2. KEPPRA [Concomitant]
     Indication: CONVULSION
     Route: 065
  3. BENICAR [Concomitant]
     Indication: HYPERTENSION
     Route: 065

REACTIONS (2)
  - ANALGESIC DRUG LEVEL ABOVE THERAPEUTIC [None]
  - COMPLETED SUICIDE [None]
